FAERS Safety Report 14405981 (Version 2)
Quarter: 2018Q2

REPORT INFORMATION
  Report Type: Spontaneous
  Country: US (occurrence: US)
  Receive Date: 20180118
  Receipt Date: 20180611
  Transmission Date: 20180711
  Serious: No
  Sender: FDA-Public Use
  Company Number: US-JNJFOC-20180104870

PATIENT
  Age: 35 Year
  Sex: Male
  Weight: 134.27 kg

DRUGS (1)
  1. RISPERDAL CONSTA [Suspect]
     Active Substance: RISPERIDONE
     Indication: SCHIZOPHRENIA
     Route: 030
     Dates: start: 201508

REACTIONS (2)
  - Underdose [Unknown]
  - Device occlusion [Unknown]

NARRATIVE: CASE EVENT DATE: 201711
